FAERS Safety Report 5094978-3 (Version None)
Quarter: 2006Q3

REPORT INFORMATION
  Report Type: 
  Country: None (occurrence: None)
  Receive Date: 20060728
  Receipt Date: 20060414
  Transmission Date: 20061208
  Serious: No
  Sender: FDA-Public Use
  Company Number: COT_0509_2006

PATIENT
  Sex: Female
  Weight: 76.6579 kg

DRUGS (16)
  1. VENTAVIS [Suspect]
     Indication: PULMONARY HYPERTENSION
     Dosage: 5 MCG 6XD IH
     Route: 055
     Dates: start: 20060106
  2. VENTAVIS [Suspect]
     Indication: PULMONARY HYPERTENSION
     Dosage: 2.5 MCG 6XD IH
     Route: 055
  3. PREDNISONE TAB [Concomitant]
  4. PREMPRO [Concomitant]
  5. SYNTHROID [Concomitant]
  6. TRENTAL [Concomitant]
  7. SILDENAFIL [Concomitant]
  8. FOSAMAX [Concomitant]
  9. POTASSIUM CHLORIDE [Concomitant]
  10. FUROSEMIDE [Concomitant]
  11. ACTIMMUNE [Concomitant]
  12. ACETYLCYSTEINE [Concomitant]
  13. CALTRATE [Concomitant]
  14. IRON [Concomitant]
  15. PRILOSEC [Concomitant]
  16. BENZONATATE [Concomitant]

REACTIONS (3)
  - FATIGUE [None]
  - MYALGIA [None]
  - NAUSEA [None]
